FAERS Safety Report 10477258 (Version 1)
Quarter: 2014Q3

REPORT INFORMATION
  Report Type: Spontaneous
  Country: AU (occurrence: None)
  Receive Date: 20140923
  Receipt Date: 20140923
  Transmission Date: 20150326
  Serious: Yes (Other)
  Sender: FDA-Public Use
  Company Number: AU-017088

PATIENT
  Sex: Female

DRUGS (1)
  1. CERVIDIL [Suspect]
     Active Substance: DINOPROSTONE
     Indication: LABOUR INDUCTION
     Dosage: TOTAL VGINAL
     Route: 067

REACTIONS (3)
  - Uterine hyperstimulation [None]
  - Abnormal labour affecting foetus [None]
  - Anaphylactoid syndrome of pregnancy [None]

NARRATIVE: CASE EVENT DATE: 201309
